FAERS Safety Report 7094153-7 (Version None)
Quarter: 2010Q4

REPORT INFORMATION
  Report Type: 
  Country: None (occurrence: None)
  Receive Date: 20101110
  Receipt Date: 20101101
  Transmission Date: 20110411
  Serious: Yes (Hospitalization, Other)
  Sender: FDA-Public Use
  Company Number: US-AMGEN-KDL441077

PATIENT

DRUGS (4)
  1. PROCRIT [Suspect]
     Indication: ANAEMIA OF MALIGNANT DISEASE
     Dosage: 20000 IU, QMO
     Route: 058
     Dates: start: 20080101, end: 20100923
  2. OPIUM TINCTURE [Concomitant]
     Indication: GASTROINTESTINAL MOTILITY DISORDER
     Dosage: 10 MG, Q6H
     Route: 048
     Dates: start: 20020101
  3. DONNATAL [Concomitant]
     Dosage: UNK
  4. VITAMINS [Concomitant]
     Dosage: UNK UNK, QD
     Route: 048

REACTIONS (3)
  - DEHYDRATION [None]
  - OEDEMA PERIPHERAL [None]
  - PROSTATE CANCER [None]
